FAERS Safety Report 24306670 (Version 1)
Quarter: 2024Q3

REPORT INFORMATION
  Report Type: Spontaneous
  Country: CA (occurrence: CA)
  Receive Date: 20240911
  Receipt Date: 20240911
  Transmission Date: 20241017
  Serious: Yes (Hospitalization, Other)
  Sender: PFIZER
  Company Number: CA-PFIZER INC-202400252916

PATIENT
  Age: 77 Year
  Sex: Male

DRUGS (2)
  1. METHOTREXATE SODIUM [Suspect]
     Active Substance: METHOTREXATE SODIUM
     Indication: Crohn^s disease
     Dosage: 1 DF
     Route: 065
     Dates: start: 20240717, end: 202409
  2. PREDNISONE [Concomitant]
     Active Substance: PREDNISONE
     Indication: Diarrhoea
     Dosage: UNK
     Dates: start: 20240724

REACTIONS (22)
  - Urosepsis [Recovering/Resolving]
  - Sepsis [Recovering/Resolving]
  - Hypertension [Recovering/Resolving]
  - Hypotension [Recovering/Resolving]
  - Asthenia [Recovering/Resolving]
  - Pyrexia [Recovering/Resolving]
  - Chills [Recovering/Resolving]
  - Vomiting [Recovering/Resolving]
  - Myalgia [Recovering/Resolving]
  - Headache [Recovering/Resolving]
  - Atonic urinary bladder [Unknown]
  - Urinary retention [Unknown]
  - Dysuria [Unknown]
  - Abdominal discomfort [Unknown]
  - Blood potassium decreased [Unknown]
  - C-reactive protein increased [Unknown]
  - Blood lactic acid increased [Unknown]
  - Blood urine [Unknown]
  - White blood cells urine positive [Unknown]
  - Bacterial test [Unknown]
  - Off label use [Unknown]
  - Drug ineffective for unapproved indication [Unknown]

NARRATIVE: CASE EVENT DATE: 20240101
